FAERS Safety Report 21306335 (Version 1)
Quarter: 2022Q3

REPORT INFORMATION
  Report Type: Spontaneous
  Country: US (occurrence: US)
  Receive Date: 20220908
  Receipt Date: 20220908
  Transmission Date: 20221027
  Serious: No
  Sender: FDA-Public Use
  Company Number: US-PERRIGO-22US003292

PATIENT
  Age: 37 Year
  Sex: Female
  Weight: 88.435 kg

DRUGS (9)
  1. MINOXIDIL [Suspect]
     Active Substance: MINOXIDIL
     Indication: Alopecia
     Dosage: 1 ML, SINGLE
     Route: 061
     Dates: start: 20220226, end: 20220226
  2. ENSULIZOLE\SULISOBENZONE [Suspect]
     Active Substance: ENSULIZOLE\SULISOBENZONE
     Indication: Alopecia
     Dosage: UNKNOWN, SINGLE
     Route: 061
     Dates: start: 20220226, end: 20220226
  3. ENSULIZOLE\SULISOBENZONE [Suspect]
     Active Substance: ENSULIZOLE\SULISOBENZONE
     Dosage: UNKNOWN, SINGLE
     Route: 061
     Dates: start: 20220226, end: 20220226
  4. PAXIL CR [Concomitant]
     Active Substance: PAROXETINE HYDROCHLORIDE
     Indication: Depression
     Dosage: UNK
     Route: 065
     Dates: start: 2021
  5. GABAPENTIN [Concomitant]
     Active Substance: GABAPENTIN
     Indication: Anxiety
     Dosage: UNK
     Route: 065
     Dates: start: 2021
  6. LAMICTAL [Concomitant]
     Active Substance: LAMOTRIGINE
     Indication: Affective disorder
     Dosage: UNK
     Route: 065
     Dates: start: 2021
  7. TRAZODONE [Concomitant]
     Active Substance: TRAZODONE HYDROCHLORIDE
     Indication: Insomnia
     Dosage: UNK
     Route: 065
     Dates: start: 2022
  8. LEVOMEFOLIC ACID [Concomitant]
     Active Substance: LEVOMEFOLIC ACID
     Indication: Therapeutic procedure
     Dosage: UNK
     Route: 065
     Dates: start: 20220222
  9. ZYRTEC [Concomitant]
     Active Substance: CETIRIZINE HYDROCHLORIDE
     Indication: Hypersensitivity
     Dosage: PRN
     Route: 065
     Dates: start: 2021

REACTIONS (4)
  - Erythema [Recovered/Resolved]
  - Skin burning sensation [Recovered/Resolved]
  - Product administered at inappropriate site [Recovered/Resolved]
  - Accidental exposure to product [Recovered/Resolved]

NARRATIVE: CASE EVENT DATE: 20220226
